FAERS Safety Report 14631919 (Version 6)
Quarter: 2018Q4

REPORT INFORMATION
  Report Type: Spontaneous
  Country: CA (occurrence: CA)
  Receive Date: 20180313
  Receipt Date: 20181004
  Transmission Date: 20190204
  Serious: Yes (Other)
  Sender: FDA-Public Use
  Company Number: CA-CELLTRION INC.-2018CA018066

PATIENT

DRUGS (8)
  1. INFLECTRA [Suspect]
     Active Substance: INFLIXIMAB-DYYB
     Dosage: 387 MG EVERY 8 WEEKS
     Route: 042
     Dates: start: 20180725
  2. INFLECTRA [Suspect]
     Active Substance: INFLIXIMAB-DYYB
     Dosage: 387 MG EVERY 8 WEEKS
     Route: 042
     Dates: start: 20180920
  3. IMURAN [Concomitant]
     Active Substance: AZATHIOPRINE
     Dosage: UNK
     Dates: start: 201701
  4. INFLECTRA [Suspect]
     Active Substance: INFLIXIMAB-DYYB
     Dosage: 770 MG, CYCLIC (EVERY 0, 2, WEEKS, THEN EVERY 8 WEEKS)
     Route: 042
     Dates: start: 20180404
  5. ACETAMINOPHEN. [Concomitant]
     Active Substance: ACETAMINOPHEN
  6. INFLECTRA [Suspect]
     Active Substance: INFLIXIMAB-DYYB
     Indication: CROHN^S DISEASE
     Dosage: 770 MG, CYCLIC (EVERY 0, 2, WEEKS, THEN EVERY 8 WEEKS)
     Route: 042
     Dates: start: 20180221
  7. INFLECTRA [Suspect]
     Active Substance: INFLIXIMAB-DYYB
     Dosage: 770 MG, CYCLIC (EVERY 0, 2, WEEKS, THEN EVERY 8 WEEKS)
     Route: 042
     Dates: start: 20180307
  8. INFLECTRA [Suspect]
     Active Substance: INFLIXIMAB-DYYB
     Dosage: 770 MG, CYCLIC (EVERY 0, 2, WEEKS, THEN EVERY 8 WEEKS)
     Route: 042
     Dates: start: 20180530

REACTIONS (9)
  - Heart rate irregular [Unknown]
  - Condition aggravated [Recovered/Resolved]
  - Concussion [Unknown]
  - Weight increased [Unknown]
  - Product use issue [Unknown]
  - Fall [Unknown]
  - Vertigo [Not Recovered/Not Resolved]
  - Nausea [Unknown]
  - Ligament sprain [Unknown]

NARRATIVE: CASE EVENT DATE: 20180225
